FAERS Safety Report 15857163 (Version 3)
Quarter: 2019Q2

REPORT INFORMATION
  Report Type: Report from Study
  Country: CA (occurrence: CA)
  Receive Date: 20190123
  Receipt Date: 20190614
  Transmission Date: 20190711
  Serious: Yes (Other)
  Sender: FDA-Public Use
  Company Number: CA-BIOGEN-2019BI00685108

PATIENT
  Age: 44 Year
  Sex: Female

DRUGS (1)
  1. TYSABRI [Suspect]
     Active Substance: NATALIZUMAB
     Indication: MULTIPLE SCLEROSIS
     Route: 050
     Dates: start: 20190115

REACTIONS (3)
  - Ovarian cancer [Unknown]
  - Headache [Unknown]
  - Prescribed underdose [Not Recovered/Not Resolved]

NARRATIVE: CASE EVENT DATE: 20190115
